FAERS Safety Report 4347083-5 (Version None)
Quarter: 2004Q2

REPORT INFORMATION
  Report Type: 
  Country: None (occurrence: None)
  Receive Date: 20040426
  Receipt Date: 20040419
  Transmission Date: 20050107
  Serious: Yes (Hospitalization)
  Sender: FDA-Public Use
  Company Number: FR-GLAXOSMITHKLINE-B0330174A

PATIENT
  Age: 48 Year
  Sex: Male

DRUGS (3)
  1. AUGMENTIN [Suspect]
     Indication: OSTEITIS
     Route: 065
  2. TAVANIC [Suspect]
     Indication: OSTEITIS
     Route: 065
  3. ZYVOXID [Suspect]
     Indication: OSTEITIS
     Dosage: 2UNIT PER DAY
     Route: 065

REACTIONS (2)
  - NEUROPATHY PERIPHERAL [None]
  - PARAESTHESIA [None]
